FAERS Safety Report 9478263 (Version 2)
Quarter: 2013Q4

REPORT INFORMATION
  Report Type: Not Available
  Country: US (occurrence: US)
  Receive Date: 20130827
  Receipt Date: 20131211
  Transmission Date: 20140711
  Serious: Yes (Other)
  Sender: FDA-Public Use
  Company Number: US-VIROPHARMA INCORPORATED-20130815CINRY4820

PATIENT
  Age: 49 Year
  Sex: Male

DRUGS (2)
  1. CINRYZE (C1 ESTERASE INHIBITOR (HUMAN)) [Suspect]
     Indication: HEREDITARY ANGIOEDEMA
     Route: 042
     Dates: start: 20110223
  2. CINRYZE (C1 ESTERASE INHIBITOR (HUMAN)) [Suspect]
     Indication: PROPHYLAXIS
     Route: 042
     Dates: end: 20130813

REACTIONS (3)
  - Thrombosis [Unknown]
  - Injection site infection [Recovered/Resolved]
  - Inappropriate schedule of drug administration [Recovered/Resolved]
